FAERS Safety Report 20263889 (Version 1)
Quarter: 2021Q4

REPORT INFORMATION
  Report Type: Spontaneous
  Country: US (occurrence: None)
  Receive Date: 20211230
  Receipt Date: 20211230
  Transmission Date: 20220303
  Serious: No
  Sender: FDA-Public Use
  Company Number: None

PATIENT

DRUGS (1)
  1. TRUXIMA [Suspect]
     Active Substance: RITUXIMAB-ABBS

REACTIONS (4)
  - Pruritus [None]
  - Urticaria [None]
  - Oropharyngeal discomfort [None]
  - Infusion related reaction [None]
